FAERS Safety Report 9099510 (Version 1)
Quarter: 2013Q1

REPORT INFORMATION
  Report Type: Report from Study
  Country: CA (occurrence: CA)
  Receive Date: 20130214
  Receipt Date: 20130214
  Transmission Date: 20140127
  Serious: Yes (Other)
  Sender: FDA-Public Use
  Company Number: CA-ABBOTT-13P-028-1048731-00

PATIENT
  Sex: Female

DRUGS (3)
  1. HUMIRA [Suspect]
     Indication: RHEUMATOID ARTHRITIS
     Route: 058
     Dates: start: 20110806, end: 201206
  2. HUMIRA [Suspect]
     Route: 058
     Dates: start: 20120720, end: 201211
  3. HUMIRA [Suspect]
     Route: 058
     Dates: start: 201212

REACTIONS (3)
  - Carpal tunnel syndrome [Recovered/Resolved]
  - Cataract [Recovered/Resolved]
  - Cataract [Recovered/Resolved]
